FAERS Safety Report 5120626-X (Version None)
Quarter: 2006Q4

REPORT INFORMATION
  Report Type: 
  Country: None (occurrence: None)
  Receive Date: 20061002
  Receipt Date: 20060919
  Transmission Date: 20070319
  Serious: Yes (Death)
  Sender: FDA-Public Use
  Company Number: GB200609004554

PATIENT
  Age: 57 Year
  Sex: Male
  Weight: 66 kg

DRUGS (2)
  1. OLANZAPINE [Suspect]
     Indication: LEARNING DISABILITY
     Dosage: 10 MG, ORAL
     Route: 048
     Dates: start: 20030822
  2. CETIRIZINE (CETIRIZINE) [Concomitant]

REACTIONS (1)
  - ACUTE MYOCARDIAL INFARCTION [None]
